FAERS Safety Report 10219031 (Version 1)
Quarter: 2014Q2

REPORT INFORMATION
  Report Type: Spontaneous
  Country: US (occurrence: None)
  Receive Date: 20140604
  Receipt Date: 20140604
  Transmission Date: 20141212
  Serious: Yes (Life-Threatening, Hospitalization)
  Sender: FDA-Public Use
  Company Number: None

PATIENT
  Age: 62 Year
  Sex: Female

DRUGS (2)
  1. OLYSIO [Suspect]
     Dosage: ONE CAPSULE, QD, ORAL
     Route: 048
     Dates: start: 20140415
  2. SOVALDI [Concomitant]

REACTIONS (3)
  - Arthralgia [None]
  - Oesophageal haemorrhage [None]
  - Coma [None]
